FAERS Safety Report 18480820 (Version 3)
Quarter: 2020Q4

REPORT INFORMATION
  Report Type: Spontaneous
  Country: US (occurrence: US)
  Receive Date: 20201109
  Receipt Date: 20201218
  Transmission Date: 20210114
  Serious: Yes (Other)
  Sender: FDA-Public Use
  Company Number: US-PFIZER INC-2020429926

PATIENT
  Age: 69 Year
  Sex: Female

DRUGS (2)
  1. METHADONE [Concomitant]
     Active Substance: METHADONE HYDROCHLORIDE
     Indication: PAIN
     Dosage: 5MG TABLET BY MOUTH, THREE TIMES A DAY
     Route: 048
     Dates: start: 2000
  2. TOVIAZ [Suspect]
     Active Substance: FESOTERODINE FUMARATE
     Indication: HYPERTONIC BLADDER
     Dosage: 1 TABLET BY MOUTH ONCE A DAY
     Route: 048

REACTIONS (8)
  - Arthralgia [Unknown]
  - Urinary incontinence [Unknown]
  - Bladder irritation [Recovering/Resolving]
  - Femur fracture [Recovering/Resolving]
  - Drug ineffective [Unknown]
  - Fall [Unknown]
  - Lower limb fracture [Unknown]
  - Joint injury [Unknown]

NARRATIVE: CASE EVENT DATE: 2019
